FAERS Safety Report 9740134 (Version 1)
Quarter: 2013Q4

REPORT INFORMATION
  Report Type: Spontaneous
  Country: US (occurrence: US)
  Receive Date: 20131209
  Receipt Date: 20131209
  Transmission Date: 20140711
  Serious: Yes (Hospitalization)
  Sender: FDA-Public Use
  Company Number: US-BAYER-2013-148712

PATIENT
  Age: 34 Year
  Sex: Female
  Weight: 57 kg

DRUGS (6)
  1. YASMIN [Suspect]
  2. OXYCODONE/APAP [Concomitant]
     Dosage: 5-325MG
  3. SYNTHROID [Concomitant]
     Dosage: 0.112MG ALTERNATING EVERY OTHER DAY WITH 0.125MG
  4. ASPIRIN [Concomitant]
     Dosage: OCCASIONAL
  5. ADVIL [Concomitant]
     Dosage: OCCASIONAL
  6. DALMANE [Concomitant]
     Indication: HEADACHE
     Dosage: OCCASIONAL

REACTIONS (3)
  - Pulmonary embolism [None]
  - Deep vein thrombosis [None]
  - Thrombophlebitis superficial [None]
